FAERS Safety Report 9320483 (Version 1)
Quarter: 2013Q2

REPORT INFORMATION
  Report Type: Spontaneous
  Country: GB (occurrence: GB)
  Receive Date: 20130530
  Receipt Date: 20130530
  Transmission Date: 20140414
  Serious: Yes (Hospitalization, Other)
  Sender: FDA-Public Use
  Company Number: GB-ABBOTT-13X-167-1095255-00

PATIENT
  Age: 77 Year
  Sex: Female

DRUGS (9)
  1. CLARITHROMYCIN [Suspect]
     Indication: PRODUCT USED FOR UNKNOWN INDICATION
  2. NITROFURANTOIN [Suspect]
     Indication: PRODUCT USED FOR UNKNOWN INDICATION
  3. CO-CODAMOL [Concomitant]
     Indication: OSTEOARTHRITIS
  4. ATORVASTATIN [Concomitant]
     Indication: PRODUCT USED FOR UNKNOWN INDICATION
  5. BENDROFLUMETHIAZIDE [Concomitant]
     Indication: PRODUCT USED FOR UNKNOWN INDICATION
  6. OMEPRAZOLE [Concomitant]
     Indication: PRODUCT USED FOR UNKNOWN INDICATION
  7. QUINAPRIL [Concomitant]
     Indication: PRODUCT USED FOR UNKNOWN INDICATION
  8. CLENIL MODULITE [Concomitant]
     Indication: PRODUCT USED FOR UNKNOWN INDICATION
  9. SALBUTAMOL [Concomitant]
     Indication: PRODUCT USED FOR UNKNOWN INDICATION
     Route: 055

REACTIONS (2)
  - Pulmonary fibrosis [Recovering/Resolving]
  - Liver function test abnormal [Recovered/Resolved]
